FAERS Safety Report 22065381 (Version 1)
Quarter: 2023Q1

REPORT INFORMATION
  Report Type: Spontaneous
  Country: US (occurrence: None)
  Receive Date: 20230303
  Receipt Date: 20230303
  Transmission Date: 20230417
  Serious: No
  Sender: FDA-Public Use
  Company Number: None

PATIENT
  Sex: Female

DRUGS (5)
  1. HUMIRA [Suspect]
     Active Substance: ADALIMUMAB
     Dosage: FREQUENCY : EVERY OTHER WEEK;?
     Route: 058
     Dates: start: 20210810
  2. NALTREXONE [Concomitant]
     Active Substance: NALTREXONE
  3. METHOTREXATE [Concomitant]
     Active Substance: METHOTREXATE
  4. PROGESTERONE [Concomitant]
     Active Substance: PROGESTERONE
  5. NP THYROID [Concomitant]
     Active Substance: LEVOTHYROXINE\LIOTHYRONINE

REACTIONS (3)
  - Device malfunction [None]
  - Accidental exposure to product [None]
  - Incorrect dose administered by device [None]
